FAERS Safety Report 19823127 (Version 2)
Quarter: 2021Q3

REPORT INFORMATION
  Report Type: Report from Study
  Country: MX (occurrence: MX)
  Receive Date: 20210913
  Receipt Date: 20210922
  Transmission Date: 20211014
  Serious: Yes (Hospitalization, Other)
  Sender: FDA-Public Use
  Company Number: NVSC2021MX057651

PATIENT
  Sex: Female
  Weight: 70 kg

DRUGS (4)
  1. CYMBALTA [Concomitant]
     Active Substance: DULOXETINE HYDROCHLORIDE
     Indication: PRODUCT USED FOR UNKNOWN INDICATION
     Dosage: 1 DF, QD
     Route: 048
     Dates: start: 2017
  2. EXELON [Suspect]
     Active Substance: RIVASTIGMINE TARTRATE
     Dosage: 4.6 MG, QD (9.0 MG RIVASTIGMINE BASE (PATCH 5.0 (CM2))
     Route: 003
     Dates: start: 2019
  3. EXELON [Suspect]
     Active Substance: RIVASTIGMINE TARTRATE
     Indication: CEREBRAL DISORDER
     Dosage: 1 DF (4.5/5 MG), QD
     Route: 003
     Dates: start: 2017, end: 2019
  4. OLANZAPINE. [Concomitant]
     Active Substance: OLANZAPINE
     Indication: PRODUCT USED FOR UNKNOWN INDICATION
     Dosage: UNK
     Route: 048
     Dates: start: 2017

REACTIONS (3)
  - Product use in unapproved indication [Unknown]
  - Anxiety [Unknown]
  - Anxiety [Recovered/Resolved]

NARRATIVE: CASE EVENT DATE: 2017
